FAERS Safety Report 9109773 (Version 2)
Quarter: 2013Q1

REPORT INFORMATION
  Report Type: Spontaneous
  Country: JP (occurrence: JP)
  Receive Date: 20130222
  Receipt Date: 20130304
  Transmission Date: 20140127
  Serious: Yes (Hospitalization)
  Sender: FDA-Public Use
  Company Number: JP-ASTRAZENECA-2013SE10596

PATIENT
  Age: 77 Year
  Sex: Female

DRUGS (4)
  1. NEXIUM [Suspect]
     Route: 048
  2. LOXOPROFEN [Concomitant]
     Dosage: DOSE UNKNOWN
     Route: 065
  3. LORNOXICAM [Concomitant]
     Dosage: DOSE UNKNOWN
     Route: 065
  4. AGENTS FOR PEPTIC ULCER [Concomitant]
     Dosage: DOSE UNKNOWN
     Route: 065

REACTIONS (1)
  - Small intestinal ulcer haemorrhage [Recovering/Resolving]
